FAERS Safety Report 17271447 (Version 1)
Quarter: 2020Q1

REPORT INFORMATION
  Report Type: Other
  Country: US (occurrence: US)
  Receive Date: 20200115
  Receipt Date: 20200115
  Transmission Date: 20200409
  Serious: Yes (Hospitalization)
  Sender: FDA-Public Use
  Company Number: US-SUNRISE PHARMACEUTICAL, INC.-2078996

PATIENT
  Age: 24 Month
  Sex: Male

DRUGS (1)
  1. PHENTERMINE HYDROCHLORIDE. [Suspect]
     Active Substance: PHENTERMINE HYDROCHLORIDE
     Indication: PRODUCT USED FOR UNKNOWN INDICATION
     Route: 048

REACTIONS (7)
  - Hypertension [Unknown]
  - Product use issue [Unknown]
  - Haematemesis [Unknown]
  - Hallucination [Unknown]
  - Agitation [Unknown]
  - Tachycardia [Unknown]
  - Ataxia [Unknown]
